FAERS Safety Report 8591315-4 (Version None)
Quarter: 2012Q3

REPORT INFORMATION
  Report Type: 
  Country: None (occurrence: None)
  Receive Date: 20120731
  Receipt Date: 20120720
  Transmission Date: 20120928
  Serious: Yes (Hospitalization, Other)
  Sender: FDA-Public Use
  Company Number: 2012P1051122

PATIENT
  Age: 87 Year
  Sex: Female

DRUGS (2)
  1. LANOXIN [Suspect]
     Indication: ATRIAL FIBRILLATION
     Dosage: 0.125 MG;PO
     Route: 048
     Dates: start: 20120101, end: 20120531
  2. TICLID [Concomitant]

REACTIONS (5)
  - BLOOD UREA INCREASED [None]
  - BRADYCARDIA [None]
  - HYPERGLYCAEMIA [None]
  - CARDIAC FAILURE [None]
  - BLOOD CREATININE INCREASED [None]
